FAERS Safety Report 13444694 (Version 2)
Quarter: 2017Q2

REPORT INFORMATION
  Report Type: Spontaneous
  Country: ES (occurrence: ES)
  Receive Date: 20170414
  Receipt Date: 20170620
  Transmission Date: 20170830
  Serious: Yes (Hospitalization, Other)
  Sender: FDA-Public Use
  Company Number: ES-PFIZER INC-2017162085

PATIENT
  Age: 82 Year
  Sex: Male

DRUGS (14)
  1. FLUTIFORM [Concomitant]
     Active Substance: FLUTICASONE PROPIONATE\FORMOTEROL FUMARATE
     Dosage: UNK
  2. TERBASMIN [Concomitant]
     Active Substance: TERBUTALINE SULFATE
     Dosage: UNK
  3. CALCITRIOL. [Concomitant]
     Active Substance: CALCITRIOL
     Dosage: UNK
  4. ENALAPRIL MALEATE/HYDROCHLOROTHIAZIDE [Concomitant]
     Dosage: UNK
  5. ALOPURINOL [Concomitant]
     Active Substance: ALLOPURINOL
     Dosage: UNK
  6. SPIRIVA RESPIMAT [Concomitant]
     Active Substance: TIOTROPIUM BROMIDE
     Dosage: UNK
  7. NITROGLICERINA [Concomitant]
     Active Substance: NITROGLYCERIN
     Dosage: UNK
  8. FERROPROTINA [Concomitant]
     Dosage: UNK
  9. TRANGOREX [Suspect]
     Active Substance: AMIODARONE HYDROCHLORIDE
     Dosage: 200 MG, DAILY
     Route: 048
     Dates: start: 20170120, end: 20170222
  10. SINTROM [Interacting]
     Active Substance: ACENOCOUMAROL
     Dosage: UNK
     Route: 048
     Dates: start: 2017, end: 20170222
  11. ATORVASTATINA [Concomitant]
     Active Substance: ATORVASTATIN
     Dosage: UNK
  12. PANTOPRAZOL [Concomitant]
     Active Substance: PANTOPRAZOLE SODIUM
     Dosage: UNK
  13. AMLODIPINE [Concomitant]
     Active Substance: AMLODIPINE BESYLATE
     Dosage: UNK
  14. DUODART [Concomitant]
     Active Substance: DUTASTERIDE\TAMSULOSIN
     Dosage: UNK

REACTIONS (3)
  - Pulmonary alveolar haemorrhage [Recovered/Resolved]
  - International normalised ratio increased [Unknown]
  - Drug interaction [Unknown]

NARRATIVE: CASE EVENT DATE: 20170222
